FAERS Safety Report 17254213 (Version 2)
Quarter: 2020Q1

REPORT INFORMATION
  Report Type: Spontaneous
  Country: DE (occurrence: DE)
  Receive Date: 20200109
  Receipt Date: 20200121
  Transmission Date: 20200409
  Serious: Yes (Hospitalization, Other)
  Sender: FDA-Public Use
  Company Number: DE-MYLANLABS-2020M1002102

PATIENT
  Age: 44 Year
  Sex: Female

DRUGS (7)
  1. PREGABALIN. [Suspect]
     Active Substance: PREGABALIN
     Indication: NEURALGIA
     Dosage: 600 MG, DAILY (WITHOUT ANY TITRATION)
     Route: 065
  2. AMITRIPTYLINE [Concomitant]
     Active Substance: AMITRIPTYLINE
     Dosage: 50 MG, DAILY
  3. PREGABALIN. [Suspect]
     Active Substance: PREGABALIN
     Dosage: INCREASING IN 150 MG EVERY 4 DAYS)
     Route: 065
  4. PREGABALIN. [Suspect]
     Active Substance: PREGABALIN
     Dosage: 150 MILLIGRAM, QD
     Route: 065
  5. CEFTRIAXONE SODIUM. [Concomitant]
     Active Substance: CEFTRIAXONE SODIUM
     Dosage: UNK
     Route: 042
  6. OXYCODONE [Concomitant]
     Active Substance: OXYCODONE
     Indication: NEURALGIA
     Dosage: 160 MILLIGRAM, QD
  7. IBUPROFEN. [Concomitant]
     Active Substance: IBUPROFEN
     Indication: NEURALGIA
     Dosage: 800 MG, DAILY

REACTIONS (9)
  - Affective disorder [Recovered/Resolved]
  - Disorientation [Recovered/Resolved]
  - Agitation [Recovered/Resolved]
  - Psychotic symptom [Recovered/Resolved]
  - Somnolence [Recovered/Resolved]
  - Electroencephalogram abnormal [Recovered/Resolved]
  - Postictal psychosis [Recovered/Resolved]
  - Hallucination, visual [Recovered/Resolved]
  - Paranoia [Recovered/Resolved]
